FAERS Safety Report 14970386 (Version 1)
Quarter: 2018Q2

REPORT INFORMATION
  Report Type: Spontaneous
  Country: US (occurrence: US)
  Receive Date: 20180604
  Receipt Date: 20180604
  Transmission Date: 20180711
  Serious: No
  Sender: FDA-Public Use
  Company Number: US-ALLERGAN-1800751US

PATIENT
  Sex: Female

DRUGS (4)
  1. KYBELLA [Suspect]
     Active Substance: DEOXYCHOLIC ACID
     Dosage: UNK UNK, SINGLE
     Route: 058
     Dates: start: 201701, end: 201701
  2. KYBELLA [Suspect]
     Active Substance: DEOXYCHOLIC ACID
     Dosage: UNK UNK, SINGLE
     Route: 058
  3. KYBELLA [Suspect]
     Active Substance: DEOXYCHOLIC ACID
     Indication: PRODUCT USED FOR UNKNOWN INDICATION
     Dosage: UNK UNK, SINGLE
     Route: 058
     Dates: start: 2016, end: 2016
  4. KYBELLA [Suspect]
     Active Substance: DEOXYCHOLIC ACID
     Dosage: UNK UNK, SINGLE
     Route: 058
     Dates: start: 2017, end: 2017

REACTIONS (4)
  - Drug ineffective [Unknown]
  - Swelling [Not Recovered/Not Resolved]
  - Acne [Not Recovered/Not Resolved]
  - Skin laxity [Not Recovered/Not Resolved]

NARRATIVE: CASE EVENT DATE: 2016
